FAERS Safety Report 14540185 (Version 2)
Quarter: 2018Q1

REPORT INFORMATION
  Report Type: Spontaneous
  Country: AT (occurrence: AT)
  Receive Date: 20180216
  Receipt Date: 20180302
  Transmission Date: 20180509
  Serious: Yes (Hospitalization)
  Sender: FDA-Public Use
  Company Number: AT-TEVA-822672ISR

PATIENT
  Age: 59 Year
  Sex: Male
  Weight: 72 kg

DRUGS (13)
  1. CYMBALTA [Suspect]
     Active Substance: DULOXETINE HYDROCHLORIDE
     Indication: PRODUCT USED FOR UNKNOWN INDICATION
     Dosage: SINCE LONG TIME
     Route: 048
  2. NOMEXOR [Concomitant]
     Active Substance: NEBIVOLOL HYDROCHLORIDE
     Indication: PRODUCT USED FOR UNKNOWN INDICATION
     Dosage: 2.5 MG, UNKNOWN
     Route: 048
     Dates: start: 20170104
  3. GEROLAMIC [Concomitant]
     Dosage: 100 MG, UNKNOWN
     Route: 048
     Dates: end: 20170124
  4. MIRTABENE [Suspect]
     Active Substance: MIRTAZAPINE
     Indication: PRODUCT USED FOR UNKNOWN INDICATION
     Dosage: 15 MG, UNKNOWN
     Route: 048
     Dates: start: 20170107, end: 20170108
  5. MIRTABENE [Suspect]
     Active Substance: MIRTAZAPINE
     Dosage: 30 MG, UNKNOWN
     Route: 048
     Dates: start: 20170126
  6. CRESTOR [Concomitant]
     Active Substance: ROSUVASTATIN CALCIUM
     Indication: PRODUCT USED FOR UNKNOWN INDICATION
     Dosage: 40 MG, UNKNOWN
     Route: 048
  7. MIRTABENE [Suspect]
     Active Substance: MIRTAZAPINE
     Dosage: 45 MG, UNKNOWN
     Route: 048
     Dates: start: 20170120, end: 20170125
  8. MIRTABENE [Suspect]
     Active Substance: MIRTAZAPINE
     Dosage: 30 MG, UNKNOWN
     Route: 065
     Dates: start: 20170109, end: 20170119
  9. GEROLAMIC [Concomitant]
     Dosage: 150 MG, UNKNOWN
     Route: 048
     Dates: start: 20170203
  10. DOMINAL (PROTHIPENDYL HYDROCHLORIDE) [Concomitant]
     Active Substance: PROTHIPENDYL HYDROCHLORIDE
     Indication: PRODUCT USED FOR UNKNOWN INDICATION
     Dosage: 80 MG, UNKNOWN
     Route: 048
     Dates: start: 20170119, end: 20170119
  11. MIRTABENE [Suspect]
     Active Substance: MIRTAZAPINE
     Route: 048
     Dates: start: 20170126
  12. NOMEXOR [Concomitant]
     Active Substance: NEBIVOLOL HYDROCHLORIDE
     Dosage: SINCE LONG TIME
     Route: 065
     Dates: end: 20170103
  13. GEROLAMIC [Concomitant]
     Indication: PRODUCT USED FOR UNKNOWN INDICATION
     Dosage: 125 MG, UNKNOWN
     Route: 048
     Dates: start: 20170125, end: 20170202

REACTIONS (2)
  - Restless legs syndrome [Recovered/Resolved]
  - Initial insomnia [Recovered/Resolved]

NARRATIVE: CASE EVENT DATE: 20170125
